FAERS Safety Report 17929408 (Version 1)
Quarter: 2020Q2

REPORT INFORMATION
  Report Type: Spontaneous
  Country: US (occurrence: US)
  Receive Date: 20200623
  Receipt Date: 20200623
  Transmission Date: 20200714
  Serious: No
  Sender: FDA-Public Use
  Company Number: US-ALLERGAN-1919466US

PATIENT
  Sex: Female

DRUGS (1)
  1. KYBELLA [Suspect]
     Active Substance: DEOXYCHOLIC ACID
     Indication: LIPOLYSIS PROCEDURE
     Dosage: 6 ML, SINGLE
     Dates: start: 20190426, end: 20190426

REACTIONS (3)
  - Facial asymmetry [Recovering/Resolving]
  - Throat tightness [Recovered/Resolved]
  - Injection site nerve damage [Not Recovered/Not Resolved]

NARRATIVE: CASE EVENT DATE: 20190426
